FAERS Safety Report 8495388-9 (Version None)
Quarter: 2012Q3

REPORT INFORMATION
  Report Type: 
  Country: None (occurrence: None)
  Receive Date: 20120709
  Receipt Date: 20120625
  Transmission Date: 20120928
  Serious: Yes (Other)
  Sender: FDA-Public Use
  Company Number: JP-UCBSA-060557

PATIENT
  Age: 60 Year
  Sex: Male

DRUGS (2)
  1. KEPPRA [Suspect]
     Route: 048
     Dates: start: 20120101, end: 20120501
  2. DEPAKENE [Suspect]
     Route: 048
     Dates: start: 20120101

REACTIONS (3)
  - RASH [None]
  - BLOOD BILIRUBIN INCREASED [None]
  - JAUNDICE [None]
